FAERS Safety Report 12271546 (Version 1)
Quarter: 2016Q2

REPORT INFORMATION
  Report Type: Spontaneous
  Country: US (occurrence: US)
  Receive Date: 20160415
  Receipt Date: 20160415
  Transmission Date: 20160815
  Serious: Yes (Other)
  Sender: FDA-Public Use
  Company Number: US-TEVA-651430USA

PATIENT
  Sex: Female

DRUGS (1)
  1. ZECUITY [Suspect]
     Active Substance: SUMATRIPTAN SUCCINATE
     Indication: MIGRAINE
     Route: 062
     Dates: start: 2016

REACTIONS (4)
  - Drug effect incomplete [Unknown]
  - Application site burn [Recovered/Resolved]
  - Drug ineffective [Unknown]
  - Application site vesicles [Unknown]

NARRATIVE: CASE EVENT DATE: 2016
